FAERS Safety Report 16670039 (Version 2)
Quarter: 2019Q3

REPORT INFORMATION
  Report Type: Spontaneous
  Country: CA (occurrence: CA)
  Receive Date: 20190805
  Receipt Date: 20190822
  Transmission Date: 20191004
  Serious: No
  Sender: FDA-Public Use
  Company Number: CA-BAUSCH-BL-2019-021891

PATIENT
  Age: 56 Year
  Sex: Male

DRUGS (2)
  1. BEPREVE [Concomitant]
     Active Substance: BEPOTASTINE BESILATE
     Indication: HYPERSENSITIVITY
  2. SOOTHE ALLERGY [NAPHAZOLINE HYDROCHLORIDE\PHENIRAMINE MALEATE] [Suspect]
     Active Substance: NAPHAZOLINE HYDROCHLORIDE\PHENIRAMINE MALEATE
     Indication: PRODUCT USED FOR UNKNOWN INDICATION
     Route: 065

REACTIONS (1)
  - Mydriasis [Recovered/Resolved]
